FAERS Safety Report 25188150 (Version 2)
Quarter: 2025Q2

REPORT INFORMATION
  Report Type: Spontaneous
  Country: AU (occurrence: AU)
  Receive Date: 20250411
  Receipt Date: 20250505
  Transmission Date: 20250717
  Serious: Yes (Other)
  Sender: TAKEDA
  Company Number: AU-TAKEDA-2025TUS033331

PATIENT
  Sex: Female

DRUGS (2)
  1. VYVANSE [Suspect]
     Active Substance: LISDEXAMFETAMINE DIMESYLATE
     Indication: Product used for unknown indication
  2. DEXTROAMPHETAMINE [Concomitant]
     Active Substance: DEXTROAMPHETAMINE

REACTIONS (36)
  - Suicidal ideation [Unknown]
  - Anger [Unknown]
  - Anxiety [Unknown]
  - Apathy [Unknown]
  - Asthenia [Unknown]
  - Bruxism [Unknown]
  - Change in sustained attention [Unknown]
  - Crying [Unknown]
  - Depression [Unknown]
  - Dermatillomania [Unknown]
  - Disturbance in attention [Unknown]
  - Dizziness [Unknown]
  - Dyskinesia [Unknown]
  - Emotional disorder [Unknown]
  - Fatigue [Unknown]
  - Food craving [Unknown]
  - Insomnia [Unknown]
  - Irritability [Unknown]
  - Migraine [Unknown]
  - Mood swings [Unknown]
  - Motor dysfunction [Unknown]
  - Muscle spasms [Unknown]
  - Muscle twitching [Unknown]
  - Nausea [Unknown]
  - Onychophagia [Unknown]
  - Pain [Unknown]
  - Product label issue [Unknown]
  - Product odour abnormal [Unknown]
  - Product outer packaging issue [Unknown]
  - Product physical issue [Unknown]
  - Product physical issue [Unknown]
  - Restlessness [Unknown]
  - Stress [Unknown]
  - Trichotillomania [Unknown]
  - Vision blurred [Unknown]
  - Weight fluctuation [Unknown]
